FAERS Safety Report 11054732 (Version 1)
Quarter: 2015Q2

REPORT INFORMATION
  Report Type: Spontaneous
  Country: US (occurrence: None)
  Receive Date: 20150421
  Receipt Date: 20150421
  Transmission Date: 20150821
  Serious: No
  Sender: FDA-Public Use
  Company Number: None

PATIENT
  Age: 89 Year
  Sex: Female
  Weight: 92.99 kg

DRUGS (10)
  1. PROLIA [Suspect]
     Active Substance: DENOSUMAB
     Indication: BONE DISORDER
     Dosage: 2X YEAR INJECTION
     Dates: start: 20150225
  2. CALCIUM + VIT D [Concomitant]
     Active Substance: CALCIUM\VITAMIN D
  3. LOTREL [Concomitant]
     Active Substance: AMLODIPINE BESYLATE\BENAZEPRIL HYDROCHLORIDE
  4. 1 A DAY VITAMIN [Concomitant]
     Active Substance: VITAMINS
  5. TRIAM/HTZ [Concomitant]
  6. METOPROLOL TARTRATE. [Concomitant]
     Active Substance: METOPROLOL TARTRATE
  7. EXEMESTANE. [Concomitant]
     Active Substance: EXEMESTANE
  8. LUMIGAN [Concomitant]
     Active Substance: BIMATOPROST
  9. GLIPIZIDE. [Concomitant]
     Active Substance: GLIPIZIDE
  10. ALPRAZOLAM. [Concomitant]
     Active Substance: ALPRAZOLAM

REACTIONS (4)
  - Peripheral swelling [None]
  - Musculoskeletal pain [None]
  - Movement disorder [None]
  - Pain in extremity [None]

NARRATIVE: CASE EVENT DATE: 20150225
